FAERS Safety Report 6369801-7 (Version None)
Quarter: 2009Q3

REPORT INFORMATION
  Report Type: 
  Country: None (occurrence: None)
  Receive Date: 20090918
  Receipt Date: 20090829
  Transmission Date: 20100115
  Serious: No
  Sender: FDA-Public Use
  Company Number: 20097316

PATIENT
  Sex: Female

DRUGS (1)
  1. LIORESAL [Suspect]
     Indication: MUSCLE SPASTICITY
     Dosage: 1280.8-663.2 MCG, DAILY, INTRATHECAL
     Route: 037

REACTIONS (9)
  - ALLODYNIA [None]
  - COGNITIVE DISORDER [None]
  - DENERVATION ATROPHY [None]
  - DYSTONIA [None]
  - HYPERAESTHESIA [None]
  - MEMORY IMPAIRMENT [None]
  - NUCLEAR MAGNETIC RESONANCE IMAGING BRAIN ABNORMAL [None]
  - PARANEOPLASTIC SYNDROME [None]
  - RADICULOPATHY [None]
